FAERS Safety Report 9514820 (Version 2)
Quarter: 2013Q3

REPORT INFORMATION
  Report Type: Spontaneous
  Country: ZA (occurrence: None)
  Receive Date: 20130819
  Receipt Date: 20130829
  Transmission Date: 20140515
  Serious: Yes (Other)
  Sender: FDA-Public Use
  Company Number: GAM-223-13-ZA

PATIENT
  Sex: Female

DRUGS (1)
  1. OCTAGAM [Suspect]
     Indication: MUSCULAR WEAKNESS
     Dosage: 90 G (1X 1/ D), INTRAVENOUS
     Dates: start: 201308, end: 201308

REACTIONS (4)
  - Muscle spasms [None]
  - Influenza like illness [None]
  - Condition aggravated [None]
  - Muscular weakness [None]
